FAERS Safety Report 6522193-2 (Version None)
Quarter: 2009Q4

REPORT INFORMATION
  Report Type: 
  Country: None (occurrence: None)
  Receive Date: 20091214
  Receipt Date: 20081028
  Transmission Date: 20100525
  Serious: Yes (Other)
  Sender: FDA-Public Use
  Company Number: 593995

PATIENT
  Age: 38 Year
  Sex: Female

DRUGS (2)
  1. PEGASYS [Suspect]
     Indication: HEPATITIS C VIRUS TEST
     Dosage: 180 UG
     Dates: start: 20080601
  2. COPEGUS [Suspect]
     Indication: HEPATITIS C VIRUS TEST
     Dosage: 1000 MG DAILY 2 PER DAY
     Dates: start: 20080601

REACTIONS (3)
  - GLOSSITIS [None]
  - PLATELET COUNT DECREASED [None]
  - WHITE BLOOD CELL COUNT DECREASED [None]
